FAERS Safety Report 9999759 (Version 1)
Quarter: 2014Q1

REPORT INFORMATION
  Report Type: Spontaneous
  Country: US (occurrence: US)
  Receive Date: 20140312
  Receipt Date: 20140312
  Transmission Date: 20141002
  Serious: Yes (Other)
  Sender: FDA-Public Use
  Company Number: US-ASTRAZENECA-2014SE15997

PATIENT
  Age: 72 Year
  Sex: Male

DRUGS (2)
  1. BRILINTA [Suspect]
     Indication: ACUTE MYOCARDIAL INFARCTION
     Route: 048
     Dates: start: 201402
  2. ASPIRIN [Concomitant]

REACTIONS (3)
  - Coronary artery restenosis [Unknown]
  - Treatment noncompliance [Unknown]
  - Platelet aggregation decreased [Unknown]
